FAERS Safety Report 20836752 (Version 1)
Quarter: 2022Q2

REPORT INFORMATION
  Report Type: Spontaneous
  Country: US (occurrence: US)
  Receive Date: 20220517
  Receipt Date: 20220517
  Transmission Date: 20220721
  Serious: No
  Sender: FDA-Public Use
  Company Number: US-BRISTOL-MYERS SQUIBB COMPANY-2022-024589

PATIENT
  Age: 53 Year
  Sex: Female

DRUGS (3)
  1. ORENCIA [Suspect]
     Active Substance: ABATACEPT
     Indication: Psoriatic arthropathy
     Route: 058
     Dates: start: 20220202
  2. ORENCIA [Suspect]
     Active Substance: ABATACEPT
     Indication: Psoriasis
  3. ORENCIA [Suspect]
     Active Substance: ABATACEPT
     Indication: Intra-uterine contraceptive device insertion

REACTIONS (2)
  - Peripheral swelling [Unknown]
  - Joint swelling [Unknown]
